FAERS Safety Report 10093084 (Version 1)
Quarter: 2014Q2

REPORT INFORMATION
  Report Type: Spontaneous
  Country: US (occurrence: US)
  Receive Date: 20140421
  Receipt Date: 20140421
  Transmission Date: 20141212
  Serious: No
  Sender: FDA-Public Use
  Company Number: US-SA-2013SA106016

PATIENT
  Age: 49 Year
  Sex: Male

DRUGS (1)
  1. ALLEGRA ALLERGY, 12 HR [Suspect]
     Indication: SNEEZING
     Route: 048
     Dates: start: 20131013, end: 20131014

REACTIONS (6)
  - Tremor [Not Recovered/Not Resolved]
  - Muscle spasms [Not Recovered/Not Resolved]
  - Heart rate increased [Not Recovered/Not Resolved]
  - Agitation [Not Recovered/Not Resolved]
  - Insomnia [Not Recovered/Not Resolved]
  - Dizziness [Not Recovered/Not Resolved]
